FAERS Safety Report 6427514-7 (Version None)
Quarter: 2009Q4

REPORT INFORMATION
  Report Type: 
  Country: None (occurrence: None)
  Receive Date: 20091104
  Receipt Date: 20091028
  Transmission Date: 20100525
  Serious: Yes (Other)
  Sender: FDA-Public Use
  Company Number: PHHY2009BR18334

PATIENT
  Sex: Female
  Weight: 79 kg

DRUGS (9)
  1. FEMARA [Suspect]
     Indication: BREAST CANCER
     Dosage: 2.5 MG, UNK
     Route: 048
     Dates: start: 20090401, end: 20091017
  2. LEXAPRO [Concomitant]
     Indication: DEPRESSION
     Dosage: 1 TABLET DAILY
     Route: 048
     Dates: start: 20090101
  3. DAFLON [Concomitant]
     Indication: POOR PERIPHERAL CIRCULATION
     Dosage: 2 TABLETS DAILY
     Route: 048
  4. CLORIDRATO DE SIBUTRAMINA [Concomitant]
     Indication: OVERWEIGHT
     Dosage: 10MG 1 TABLET DAILY
     Route: 048
     Dates: start: 20090301
  5. CLINDAMYCIN HCL [Concomitant]
     Indication: SUTURE RELATED COMPLICATION
     Dosage: 1 DF, Q6H
     Route: 048
     Dates: start: 20090511
  6. CELEBRA [Concomitant]
     Indication: SWELLING
     Dosage: 1 DF, Q12H
     Route: 048
     Dates: start: 20090511
  7. RIVOTRIL [Concomitant]
     Indication: INSOMNIA
     Dosage: 1 TABLET OR SOMETIMES 2 TABLETS DAILY
     Route: 048
  8. CALTRATE [Concomitant]
     Dosage: 600 D, ONE TABLET DAILY FOR 4 OR 5 MONTHS
  9. BONIVA [Concomitant]
     Dosage: ONE TABLET A MONTH

REACTIONS (10)
  - ABDOMINAL PAIN UPPER [None]
  - ARTHRALGIA [None]
  - BACK PAIN [None]
  - BONE PAIN [None]
  - COLD SWEAT [None]
  - DENTAL IMPLANTATION [None]
  - EYE IRRITATION [None]
  - LIMB DISCOMFORT [None]
  - PAIN [None]
  - SWELLING FACE [None]
